FAERS Safety Report 18519507 (Version 3)
Quarter: 2020Q4

REPORT INFORMATION
  Report Type: Report from Study
  Country: AU (occurrence: AU)
  Receive Date: 20201118
  Receipt Date: 20201230
  Transmission Date: 20210114
  Serious: Yes (Life-Threatening)
  Sender: FDA-Public Use
  Company Number: AU-PFIZER INC-2020449681

PATIENT
  Weight: 67.6 kg

DRUGS (47)
  1. ONDANSETRON [Concomitant]
     Active Substance: ONDANSETRON
     Indication: VOMITING
  2. PARACETAMOL [Concomitant]
     Active Substance: ACETAMINOPHEN
     Indication: PYREXIA
     Dosage: 660 MG, EVERY 4 HRS
     Dates: start: 20201106, end: 20201116
  3. GRANISETRON [Concomitant]
     Active Substance: GRANISETRON
     Indication: PROCEDURAL VOMITING
  4. VANCOMYCIN [Concomitant]
     Active Substance: VANCOMYCIN
     Indication: LYMPHADENITIS
     Dosage: 550 MG, 4X/DAY
     Dates: start: 20201027, end: 20201028
  5. LORAZEPAM. [Concomitant]
     Active Substance: LORAZEPAM
     Indication: VOMITING
  6. POTASSIUM [Concomitant]
     Active Substance: POTASSIUM
     Dosage: UNK UNK, 2X/DAY (40 OTHER, 2X/DAY)
     Dates: start: 20201102, end: 20201103
  7. PLATELETS [Concomitant]
     Active Substance: HUMAN PLATELET, ALLOGENIC
     Indication: THROMBOCYTOPENIA
     Dosage: 1 IU, 1X/DAY
     Dates: start: 20201101, end: 20201101
  8. RED BLOOD CELLS, CONCENTRATED [Concomitant]
     Active Substance: HUMAN RED BLOOD CELL
     Indication: ANAEMIA
     Dosage: 1 IU, 1X/DAY
     Dates: start: 20201102, end: 20201102
  9. GEMTUZUMAB OZOGAMICIN [Suspect]
     Active Substance: GEMTUZUMAB OZOGAMICIN
     Indication: ACUTE MYELOID LEUKAEMIA
     Dosage: 5 MG (OTHER)
     Route: 042
     Dates: start: 20201006, end: 20201012
  10. CETIRIZINE [Concomitant]
     Active Substance: CETIRIZINE HYDROCHLORIDE
     Dosage: 10 MG, AS NEEDED
     Dates: start: 20201114, end: 20201116
  11. CYCLIZINE [Concomitant]
     Active Substance: CYCLIZINE
     Indication: NAUSEA
     Dosage: 50 MG, 3X/DAY
     Dates: start: 20201024, end: 20201123
  12. MEROPENEM. [Concomitant]
     Active Substance: MEROPENEM
     Indication: ONCOLOGIC COMPLICATION
     Dosage: 2 G, 3X/DAY
     Dates: start: 20201028, end: 20201104
  13. PROMETHAZINE [Concomitant]
     Active Substance: PROMETHAZINE HYDROCHLORIDE
     Indication: PREMEDICATION
     Dosage: 10 MG, 1X/DAY
     Dates: start: 20201029, end: 20201029
  14. SODIUM BICARBONATE. [Concomitant]
     Active Substance: SODIUM BICARBONATE
     Indication: MUCOSAL INFLAMMATION
     Dosage: 10 ML, 3X/DAY
     Dates: start: 20201025
  15. TRIMETHOPRIM SULFAMETHOXAZOLE [Concomitant]
     Active Substance: SULFAMETHOXAZOLE\TRIMETHOPRIM
     Indication: PROPHYLAXIS
     Dosage: 160 MG, 2X/DAY
     Dates: start: 20201005
  16. PARACETAMOL [Concomitant]
     Active Substance: ACETAMINOPHEN
     Indication: PAIN
     Dosage: 670 MG (Q.H)
     Dates: start: 20201103, end: 20201106
  17. PARACETAMOL [Concomitant]
     Active Substance: ACETAMINOPHEN
     Dosage: 1 G, 4X/DAY
     Dates: start: 20201116, end: 20201122
  18. AMPHOTERICIN B. [Concomitant]
     Active Substance: AMPHOTERICIN B
     Dosage: 200 MG, 1X/DAY
     Dates: start: 20201029, end: 20201112
  19. PHYTOMENADIONE [Concomitant]
     Active Substance: PHYTONADIONE
     Indication: COAGULOPATHY
     Dosage: 10 MG, 1X/DAY
     Dates: start: 20201111, end: 20201112
  20. VANCOMYCIN [Concomitant]
     Active Substance: VANCOMYCIN
     Indication: PYREXIA
     Dosage: 500 MG, 4X/DAY
     Dates: start: 20201031, end: 20201101
  21. PARACETAMOL [Concomitant]
     Active Substance: ACETAMINOPHEN
     Dosage: 1 G, AS NEEDED
     Dates: start: 20201021, end: 20201103
  22. CYCLIZINE [Concomitant]
     Active Substance: CYCLIZINE
     Indication: VOMITING
     Dosage: 50 MG, AS NEEDED
     Dates: start: 20201029, end: 20201215
  23. GRANISETRON [Concomitant]
     Active Substance: GRANISETRON
     Indication: PROCEDURAL NAUSEA
     Dosage: 2 MG, 2X/DAY
     Dates: start: 20201015
  24. VANCOMYCIN [Concomitant]
     Active Substance: VANCOMYCIN
     Dosage: 600 MG, 4X/DAY
     Dates: start: 20201101, end: 20201104
  25. PANTOPRAZOLE [Concomitant]
     Active Substance: PANTOPRAZOLE
     Dosage: 40 MG, 1X/DAY
     Dates: start: 20201105, end: 20201125
  26. CERNEVIT [Concomitant]
     Active Substance: VITAMINS
     Indication: PARENTERAL NUTRITION
     Dosage: 5 ML, 1X/DAY
     Dates: start: 20201023, end: 20201115
  27. PROMETHAZINE [Concomitant]
     Active Substance: PROMETHAZINE HYDROCHLORIDE
     Dosage: 10 MG, 1X/DAY
     Dates: start: 20201110, end: 20201110
  28. DOCUSATE [Concomitant]
     Active Substance: DOCUSATE
     Dosage: 240 MG, AS NEEDED
     Dates: start: 20201116
  29. LACTULOSE. [Concomitant]
     Active Substance: LACTULOSE
     Indication: CONSTIPATION
     Dosage: 10 ML, AS NEEDED
     Dates: start: 20201024, end: 20201213
  30. LORAZEPAM. [Concomitant]
     Active Substance: LORAZEPAM
     Indication: NAUSEA
     Dosage: 1 MG, AS NEEDED
     Dates: start: 20201015
  31. POTASSIUM [Concomitant]
     Active Substance: POTASSIUM
     Dosage: UNK UNK, 1X/DAY (40 OTHER, 1X/DAY)
     Dates: start: 20201105, end: 20201105
  32. POTASSIUM [Concomitant]
     Active Substance: POTASSIUM
     Dosage: UNK UNK, 1X/DAY (40 OTHER, 1X/DAY)
     Dates: start: 20201106, end: 20201106
  33. FUROSEMIDE. [Concomitant]
     Active Substance: FUROSEMIDE
     Indication: FLUID OVERLOAD
     Dosage: 40 MG, 2X/DAY
     Dates: start: 20201110
  34. ALBUMIN 20 TRCS [Concomitant]
     Indication: FLUID OVERLOAD
     Dosage: 300 ML, 1X/DAY
     Dates: start: 20201107, end: 20201112
  35. PROMETHAZINE [Concomitant]
     Active Substance: PROMETHAZINE HYDROCHLORIDE
     Dosage: 10 MG, 1X/DAY
     Dates: start: 20201109, end: 20201109
  36. AMPHOTERICIN B. [Concomitant]
     Active Substance: AMPHOTERICIN B
     Indication: PROPHYLAXIS
     Dosage: 190 MG, 1X/DAY
     Dates: start: 20201028, end: 20201028
  37. POTASSIUM [Concomitant]
     Active Substance: POTASSIUM
     Indication: HYPOKALAEMIA
     Dosage: UNK UNK, 1X/DAY (10 OTHER, 1X/DAY)
     Dates: start: 20201108, end: 20201109
  38. MITOXANTRONE HCL [Suspect]
     Active Substance: MITOXANTRONE HYDROCHLORIDE
     Indication: ACUTE MYELOID LEUKAEMIA
     Dosage: 21 MG/M2, 1X/DAY
     Route: 042
     Dates: start: 20201003, end: 20201006
  39. ONDANSETRON [Concomitant]
     Active Substance: ONDANSETRON
     Indication: NAUSEA
     Dosage: 8 MG, 1X/DAY
     Dates: start: 20201105, end: 20201105
  40. CETIRIZINE [Concomitant]
     Active Substance: CETIRIZINE HYDROCHLORIDE
     Indication: PRURITUS
     Dosage: 10 MG, 1X/DAY
     Dates: start: 20201111, end: 20201111
  41. PHYTOMENADIONE [Concomitant]
     Active Substance: PHYTONADIONE
     Dosage: 10 MG, 1X/DAY
     Dates: start: 20201116, end: 20201117
  42. PIPERACILLINE / TAZOBACTAM [Concomitant]
     Active Substance: PIPERACILLIN SODIUM\TAZOBACTAM SODIUM
     Indication: FEBRILE NEUTROPENIA
     Dosage: 4 G, 4X/DAY
     Dates: start: 20201104, end: 20201111
  43. DOCUSATE [Concomitant]
     Active Substance: DOCUSATE
     Indication: CONSTIPATION
     Dosage: 10 MG, AS NEEDED
     Dates: start: 20201024, end: 20201115
  44. OXYCODONE [Concomitant]
     Active Substance: OXYCODONE
     Indication: PAIN
     Dosage: 10 MG, AS NEEDED
     Dates: start: 20201110, end: 20201111
  45. MORPHINE [Concomitant]
     Active Substance: MORPHINE
     Indication: PAIN
     Dosage: 100 MG (OTHER) (OVER 24HRS)
     Dates: start: 20201025, end: 20201112
  46. PHOSPHATES [SODIUM PHOSPHATE] [Concomitant]
     Active Substance: SODIUM PHOSPHATE
     Indication: BLOOD PHOSPHORUS DECREASED
     Dosage: UNK UNK, 1X/DAY (10 OTHER, 1X/DAY)
     Dates: start: 20201103, end: 20201103
  47. POTASSIUM [Concomitant]
     Active Substance: POTASSIUM
     Dosage: UNK UNK, 1X/DAY (40 OTHER, 1X/DAY)
     Dates: start: 20201107, end: 20201108

REACTIONS (1)
  - Venoocclusive liver disease [Recovered/Resolved]

NARRATIVE: CASE EVENT DATE: 20201111
